FAERS Safety Report 4356519-5 (Version None)
Quarter: 2004Q2

REPORT INFORMATION
  Report Type: 
  Country: None (occurrence: None)
  Receive Date: 20040506
  Receipt Date: 20040426
  Transmission Date: 20050107
  Serious: Yes (Hospitalization)
  Sender: FDA-Public Use
  Company Number: 2004210746SE

PATIENT
  Age: 7 Year
  Sex: Male

DRUGS (8)
  1. SOLU-CORTEF [Suspect]
     Indication: ANAPHYLACTIC REACTION
     Dosage: 100 MG, IV
     Route: 042
     Dates: start: 20031122, end: 20031122
  2. ADRENALIN           NM PHARMA (ADRENALIN) [Suspect]
     Indication: ANAPHYLACTIC REACTION
     Dosage: 0.2 MG, IV
     Route: 042
     Dates: start: 20031122, end: 20031122
  3. BETAMETHASONE [Suspect]
     Indication: ANAPHYLACTIC REACTION
     Dosage: 6 MG, ORAL
     Route: 048
     Dates: start: 20031122, end: 20031122
  4. CLEMASTINE (CLEMASTINE) [Suspect]
     Indication: ANAPHYLACTIC REACTION
     Dosage: 5 ML, IV
     Route: 042
     Dates: start: 20031122, end: 20031122
  5. CALCIUM CARBONATE [Concomitant]
  6. SALBUTAMOL (SALBUTAMOL) [Concomitant]
  7. CETIRIZIN [Concomitant]
  8. ADRENALIN    (EPINEPHR INE) [Concomitant]

REACTIONS (5)
  - ABDOMINAL PAIN [None]
  - HYPERSENSITIVITY [None]
  - PRURITUS [None]
  - RASH MACULAR [None]
  - VOMITING [None]
